FAERS Safety Report 7015213-2 (Version None)
Quarter: 2010Q3

REPORT INFORMATION
  Report Type: 
  Country: None (occurrence: None)
  Receive Date: 20100927
  Receipt Date: 20100917
  Transmission Date: 20110219
  Serious: Yes (Other)
  Sender: FDA-Public Use
  Company Number: GB-AMGEN-QUU439238

PATIENT

DRUGS (4)
  1. NEULASTA [Suspect]
     Indication: CHEMOTHERAPY
     Route: 065
     Dates: start: 20100909
  2. FLUOROURACIL [Concomitant]
     Dates: start: 20100908
  3. EPIRUBICIN [Concomitant]
     Dates: start: 20100908
  4. CYCLOPHOSPHAMIDE [Concomitant]
     Dates: start: 20100908

REACTIONS (1)
  - NEUTROPENIC SEPSIS [None]
